FAERS Safety Report 7891810-7 (Version None)
Quarter: 2011Q4

REPORT INFORMATION
  Report Type: 
  Country: None (occurrence: None)
  Receive Date: 20111103
  Receipt Date: 20110810
  Transmission Date: 20120403
  Serious: No
  Sender: FDA-Public Use
  Company Number: US-AMGEN-USASP2011040679

PATIENT
  Sex: Female

DRUGS (1)
  1. ENBREL [Suspect]
     Indication: PSORIASIS
     Dosage: UNK
     Dates: start: 20110715

REACTIONS (6)
  - HEADACHE [None]
  - FINGER DEFORMITY [None]
  - PSORIASIS [None]
  - HEARING IMPAIRED [None]
  - PRURITUS [None]
  - NAIL DISORDER [None]
